FAERS Safety Report 9036292 (Version 1)
Quarter: 2013Q1

REPORT INFORMATION
  Report Type: Spontaneous
  Country: US (occurrence: None)
  Receive Date: 20130123
  Receipt Date: 20130123
  Transmission Date: 20140127
  Serious: Yes (Disabling, Other)
  Sender: FDA-Public Use
  Company Number: None

PATIENT
  Age: 41 Year
  Sex: Male
  Weight: 102.06 kg

DRUGS (2)
  1. AFRIN [Suspect]
     Indication: NASOPHARYNGITIS
     Route: 045
     Dates: start: 20121230, end: 20130101
  2. AFRIN [Suspect]
     Indication: INFLUENZA
     Route: 045
     Dates: start: 20121230, end: 20130101

REACTIONS (2)
  - Anosmia [None]
  - Ageusia [None]
